FAERS Safety Report 9821214 (Version 2)
Quarter: 2014Q1

REPORT INFORMATION
  Report Type: Spontaneous
  Country: US (occurrence: US)
  Receive Date: 20140116
  Receipt Date: 20140116
  Transmission Date: 20141002
  Serious: Yes (Life-Threatening, Other)
  Sender: FDA-Public Use
  Company Number: US-GILEAD-2011-0034873

PATIENT
  Age: 80 Year
  Sex: Female
  Weight: 68.04 kg

DRUGS (11)
  1. LETAIRIS [Suspect]
     Indication: PRODUCT USED FOR UNKNOWN INDICATION
     Route: 048
     Dates: start: 20101129, end: 20101211
  2. HYDROCHLOROTHIAZIDE/LOSARTAN POTASSIUM [Concomitant]
  3. NORVASC [Concomitant]
  4. TENORMIN [Concomitant]
  5. NITROSTAT [Concomitant]
  6. ASA [Concomitant]
  7. POTASSIUM [Concomitant]
  8. SPIRIVA [Concomitant]
  9. ACIPHEX [Concomitant]
  10. PREDNISONE [Concomitant]
  11. GLUCOSAMINE [Concomitant]

REACTIONS (3)
  - Lip swelling [Recovered/Resolved]
  - Swollen tongue [Recovered/Resolved]
  - Pharyngeal oedema [Unknown]
